FAERS Safety Report 5502425-X (Version None)
Quarter: 2007Q4

REPORT INFORMATION
  Report Type: 
  Country: None (occurrence: None)
  Receive Date: 20071030
  Receipt Date: 20071018
  Transmission Date: 20080405
  Serious: Yes (Other)
  Sender: FDA-Public Use
  Company Number: US-PFIZER INC-2007072501

PATIENT
  Sex: Female
  Weight: 65.909 kg

DRUGS (14)
  1. LYRICA [Suspect]
     Indication: FIBROMYALGIA
  2. NEURONTIN [Suspect]
  3. DONNATAL [Concomitant]
  4. SOMA [Concomitant]
  5. NORCO [Concomitant]
  6. ACIPHEX [Concomitant]
  7. TEMAZEPAM [Concomitant]
  8. PSEUDOEPHEDRINE HCL [Concomitant]
  9. CHLORPHENIRAMINE TAB [Concomitant]
  10. ZOLOFT [Concomitant]
  11. PREMARIN [Concomitant]
  12. PROVERA [Concomitant]
  13. IBUPROFEN [Concomitant]
  14. VALTREX [Concomitant]

REACTIONS (5)
  - ACTIVITIES OF DAILY LIVING IMPAIRED [None]
  - DRUG INEFFECTIVE [None]
  - DYSARTHRIA [None]
  - PARAESTHESIA [None]
  - SOMNOLENCE [None]
